FAERS Safety Report 13798220 (Version 1)
Quarter: 2017Q3

REPORT INFORMATION
  Report Type: Spontaneous
  Country: US (occurrence: US)
  Receive Date: 20170727
  Receipt Date: 20170727
  Transmission Date: 20171127
  Serious: Yes (Hospitalization, Disabling, Other)
  Sender: FDA-Public Use
  Company Number: US-TEVA-252005USA

PATIENT
  Sex: Female

DRUGS (1)
  1. METOCLOPRAMIDE. [Suspect]
     Active Substance: METOCLOPRAMIDE
     Dates: start: 200808, end: 200903

REACTIONS (4)
  - Tardive dyskinesia [Unknown]
  - Movement disorder [Unknown]
  - Extrapyramidal disorder [Unknown]
  - Overdose [Unknown]
